FAERS Safety Report 8026220-5 (Version None)
Quarter: 2012Q1

REPORT INFORMATION
  Report Type: 
  Country: None (occurrence: None)
  Receive Date: 20120105
  Receipt Date: 20110223
  Transmission Date: 20120608
  Serious: No
  Sender: FDA-Public Use
  Company Number: US-ABBOTT-11P-163-0707191-00

PATIENT
  Sex: Female

DRUGS (4)
  1. SYNTHROID [Suspect]
     Indication: BASEDOW'S DISEASE
     Dates: start: 20110101
  2. SYNTHROID [Suspect]
     Dates: end: 20110101
  3. EFFERVESCENT K+ [Concomitant]
     Indication: RENAL DISORDER
  4. VITAMIN B-12 [Concomitant]
     Indication: PERNICIOUS ANAEMIA

REACTIONS (2)
  - RASH PAPULAR [None]
  - RASH PRURITIC [None]
